FAERS Safety Report 14333740 (Version 1)
Quarter: 2017Q4

REPORT INFORMATION
  Report Type: Spontaneous
  Country: US (occurrence: US)
  Receive Date: 20171227
  Receipt Date: 20171227
  Transmission Date: 20180321
  Serious: No
  Sender: FDA-Public Use
  Company Number: None

PATIENT
  Age: 86 Year
  Sex: Female
  Weight: 65 kg

DRUGS (1)
  1. KISQALI [Suspect]
     Active Substance: RIBOCICLIB
     Indication: BREAST CANCER FEMALE
     Dosage: 3T QD FOR 21 DAYS BY MOUTH
     Route: 048
     Dates: start: 201705, end: 201707

REACTIONS (2)
  - Therapy cessation [None]
  - Blister [None]

NARRATIVE: CASE EVENT DATE: 20170809
